FAERS Safety Report 7635946-4 (Version None)
Quarter: 2011Q3

REPORT INFORMATION
  Report Type: 
  Country: None (occurrence: None)
  Receive Date: 20110726
  Receipt Date: 20110718
  Transmission Date: 20111222
  Serious: Yes (Life-Threatening, Hospitalization, Other)
  Sender: FDA-Public Use
  Company Number: DE-ASTRAZENECA-2011SE29112

PATIENT
  Age: 66 Year
  Sex: Male

DRUGS (49)
  1. CLORAZEPATE DIPOTASSIUM [Interacting]
     Route: 042
     Dates: start: 20050625
  2. CLORAZEPATE DIPOTASSIUM [Interacting]
     Route: 042
     Dates: start: 20050627
  3. CLONIDINE HCL [Interacting]
     Dosage: UNKNOWN AMOUNT VIA SYRINGE PUMP
     Route: 065
     Dates: start: 20050624, end: 20050709
  4. HALOPERIDOL [Interacting]
     Route: 042
     Dates: start: 20050701
  5. PROMETHAZINE HCL [Interacting]
     Route: 042
     Dates: start: 20050709
  6. METHYLPREDNISOLONE [Interacting]
     Route: 042
     Dates: start: 20050624
  7. NOVALGIN [Interacting]
     Route: 042
     Dates: start: 20050709
  8. KETANEST S [Interacting]
     Indication: ANAESTHESIA
     Route: 042
     Dates: start: 20050702, end: 20050702
  9. KETANEST S [Interacting]
     Route: 042
     Dates: start: 20050705
  10. LORAZEPAM [Interacting]
     Route: 042
     Dates: start: 20050630, end: 20050701
  11. CLORAZEPATE DIPOTASSIUM [Interacting]
     Route: 042
     Dates: start: 20050624
  12. HALOPERIDOL [Interacting]
     Route: 042
     Dates: start: 20050627, end: 20050730
  13. CIPRO [Interacting]
     Route: 042
     Dates: start: 20050709, end: 20050711
  14. PROPOFOL [Interacting]
     Route: 042
     Dates: start: 20050623, end: 20050623
  15. PROPOFOL [Interacting]
     Route: 042
     Dates: start: 20050625, end: 20050625
  16. LORAZEPAM [Interacting]
     Route: 042
     Dates: start: 20050709
  17. CLORAZEPATE DIPOTASSIUM [Interacting]
     Route: 042
     Dates: start: 20050708
  18. HALOPERIDOL [Interacting]
     Route: 042
     Dates: start: 20050625
  19. LUDIOMIL [Interacting]
     Dosage: UNKNOWN AMOUNT VIA SYRINGE PUMP
     Route: 042
     Dates: start: 20050701, end: 20050704
  20. PROMETHAZINE HCL [Interacting]
     Route: 048
     Dates: start: 20050708
  21. PROMETHAZINE HCL [Interacting]
     Route: 048
     Dates: start: 20050710
  22. MADOPAR [Interacting]
     Indication: RESTLESS LEGS SYNDROME
     Route: 048
     Dates: start: 20050707, end: 20050710
  23. KETANEST S [Interacting]
     Route: 042
     Dates: start: 20050708
  24. CLORAZEPATE DIPOTASSIUM [Interacting]
     Route: 042
     Dates: start: 20050705
  25. LUDIOMIL [Interacting]
     Dosage: UNKNOWN AMOUNT VIA SYRINGE PUMP
     Route: 042
     Dates: start: 20050628, end: 20050629
  26. TORSEMIDE [Interacting]
     Route: 042
     Dates: start: 20050622
  27. ACETAMINOPHEN [Interacting]
     Route: 042
     Dates: start: 20050709
  28. MORPHINE [Interacting]
     Dosage: 19 EMPTY VIALS FOUND (EACH 10 MG MORPHINE), UNKNOWN IF ALL 19 VIALS WERE ADMINISTERED
     Dates: start: 20050622, end: 20050622
  29. PROPOFOL [Interacting]
     Dosage: UNKNOWN AMOUNT VIA SYRINGE PUMP
     Route: 042
     Dates: start: 20050624, end: 20050624
  30. NEXIUM [Interacting]
     Route: 042
     Dates: start: 20050622, end: 20050703
  31. LORAZEPAM [Interacting]
     Route: 042
     Dates: start: 20050705
  32. ASPIRIN [Interacting]
     Route: 048
     Dates: start: 20050706
  33. LUDIOMIL [Interacting]
     Route: 042
     Dates: start: 20050630
  34. METOCLOPRAMIDE [Interacting]
     Route: 042
     Dates: start: 20050709
  35. PROPOFOL [Suspect]
     Indication: ANAESTHESIA
     Route: 042
     Dates: start: 20050622, end: 20050622
  36. NEXIUM [Interacting]
     Route: 048
     Dates: start: 20050704, end: 20050711
  37. MIDAZOLAM HCL [Interacting]
     Indication: ANAESTHESIA
     Dosage: UNKNOWN AMOUNT VIA SYRINGE PUMP
     Route: 042
     Dates: start: 20050623, end: 20050624
  38. MIDAZOLAM HCL [Interacting]
     Route: 042
     Dates: start: 20050702
  39. CLORAZEPATE DIPOTASSIUM [Interacting]
     Route: 042
     Dates: start: 20050629, end: 20050701
  40. HALOPERIDOL [Interacting]
     Route: 042
     Dates: start: 20050626
  41. LUDIOMIL [Interacting]
     Route: 048
     Dates: start: 20050711
  42. TORSEMIDE [Interacting]
     Route: 042
     Dates: start: 20050624, end: 20050703
  43. TORSEMIDE [Interacting]
     Route: 048
     Dates: start: 20050704, end: 20050711
  44. SCOPOLAMINE [Interacting]
     Route: 042
     Dates: start: 20050709
  45. HALOPERIDOL [Interacting]
     Route: 042
     Dates: start: 20050702
  46. HALOPERIDOL [Interacting]
     Route: 042
     Dates: start: 20050703, end: 20050704
  47. LUDIOMIL [Interacting]
     Route: 048
     Dates: start: 20050705, end: 20050710
  48. TORSEMIDE [Interacting]
     Route: 042
     Dates: start: 20050623
  49. MORPHINE [Interacting]
     Indication: RESTLESS LEGS SYNDROME

REACTIONS (8)
  - OVERDOSE [None]
  - TRACHEOBRONCHITIS [None]
  - SUICIDE ATTEMPT [None]
  - CHOLECYSTECTOMY [None]
  - DRUG WITHDRAWAL SYNDROME [None]
  - ACUTE ABDOMEN [None]
  - DRUG ADMINISTRATION ERROR [None]
  - DRUG INTERACTION [None]
